FAERS Safety Report 11615878 (Version 2)
Quarter: 2016Q2

REPORT INFORMATION
  Report Type: Spontaneous
  Country: IT (occurrence: IT)
  Receive Date: 20151009
  Receipt Date: 20160429
  Transmission Date: 20160815
  Serious: Yes (Life-Threatening)
  Sender: FDA-Public Use
  Company Number: IT-TEVA-599232ACC

PATIENT
  Age: 70 Year
  Sex: Male
  Weight: 81 kg

DRUGS (3)
  1. FLUOROURACIL. [Interacting]
     Active Substance: FLUOROURACIL
     Dosage: 4500 MG CYCLICAL
     Route: 041
     Dates: start: 20150114, end: 20150716
  2. LEVOFOLENE - ALFA WASSERMANN S.P.A. [Interacting]
     Active Substance: LEVOLEUCOVORIN CALCIUM PENTAHYDRATE
     Indication: CHEMOTHERAPY
     Dosage: 375 MG CYCLICAL
     Route: 041
     Dates: start: 20150714
  3. FLUOROURACIL. [Suspect]
     Active Substance: FLUOROURACIL
     Indication: CHEMOTHERAPY
     Dosage: 750 MG CYCLICAL
     Route: 040
     Dates: start: 20150714

REACTIONS (7)
  - Febrile neutropenia [Recovered/Resolved]
  - Thrombocytopenia [Recovered/Resolved]
  - Diarrhoea [Recovered/Resolved]
  - Blister [Recovered/Resolved]
  - Intertrigo [Recovered/Resolved]
  - Drug interaction [Recovered/Resolved]
  - Stomatitis [Recovered/Resolved]

NARRATIVE: CASE EVENT DATE: 20150720
